FAERS Safety Report 19269343 (Version 1)
Quarter: 2021Q2

REPORT INFORMATION
  Report Type: Spontaneous
  Country: US (occurrence: US)
  Receive Date: 20210517
  Receipt Date: 20210517
  Transmission Date: 20210717
  Serious: No
  Sender: FDA-Public Use
  Company Number: US-DRREDDYS-USA/USA/21/0135399

PATIENT
  Age: 24 Year
  Sex: Male

DRUGS (2)
  1. ZENATANE [Suspect]
     Active Substance: ISOTRETINOIN
     Indication: PRODUCT USED FOR UNKNOWN INDICATION
     Dosage: RMA ISSUE DATES WERE NOTED AS: 30 SEPTEMBER 2020, 21 OCTOBER 2020, 20 NOVEMBER 2020, 06 JANUARY 2021
  2. ZENATANE [Suspect]
     Active Substance: ISOTRETINOIN
     Dosage: RMA ISSUE DATE: 21 OCTOBER 2020, 20 NOVEMBER 2020,16 JANUARY 2021 AND 08 FEBRUARY 2021

REACTIONS (1)
  - Therapy cessation [Unknown]
